FAERS Safety Report 21916694 (Version 1)
Quarter: 2023Q1

REPORT INFORMATION
  Report Type: Spontaneous
  Country: US (occurrence: None)
  Receive Date: 20230126
  Receipt Date: 20230126
  Transmission Date: 20230418
  Serious: Yes (Death, Hospitalization)
  Sender: FDA-Public Use
  Company Number: None

PATIENT
  Sex: Female
  Weight: 84.2 kg

DRUGS (4)
  1. TAXOL [Suspect]
     Active Substance: PACLITAXEL
  2. PACLITAXEL [Concomitant]
     Active Substance: PACLITAXEL
  3. PERTUZUMAB [Concomitant]
  4. TRASTUZUMAB (HERCEPTIN) [Concomitant]

REACTIONS (20)
  - Pain [None]
  - Asthenia [None]
  - Diarrhoea [None]
  - Myalgia [None]
  - Dehydration [None]
  - Tachycardia [None]
  - Orthostatic hypotension [None]
  - White blood cell count increased [None]
  - Neutrophil count increased [None]
  - Blood glucose increased [None]
  - Aspartate aminotransferase increased [None]
  - Alanine aminotransferase increased [None]
  - Erythema [None]
  - Skin exfoliation [None]
  - Infection [None]
  - Pneumonia [None]
  - COVID-19 pneumonia [None]
  - Pulmonary oedema [None]
  - Pulseless electrical activity [None]
  - Cardiac arrest [None]

NARRATIVE: CASE EVENT DATE: 20210731
